FAERS Safety Report 6982606-9 (Version None)
Quarter: 2010Q3

REPORT INFORMATION
  Report Type: 
  Country: None (occurrence: None)
  Receive Date: 20100914
  Receipt Date: 20100301
  Transmission Date: 20110219
  Serious: No
  Sender: FDA-Public Use
  Company Number: US-PFIZER INC-2010026822

PATIENT
  Sex: Female

DRUGS (2)
  1. LYRICA [Suspect]
     Indication: TRIGEMINAL NEURALGIA
     Dosage: UNK
  2. NEURONTIN [Suspect]
     Dosage: 1100 MG/DAY

REACTIONS (2)
  - BRADYPHRENIA [None]
  - PAIN [None]
